FAERS Safety Report 17044271 (Version 1)
Quarter: 2019Q4

REPORT INFORMATION
  Report Type: Spontaneous
  Country: US (occurrence: US)
  Receive Date: 20191018
  Receipt Date: 20191018
  Transmission Date: 20200122
  Serious: No
  Sender: FDA-Public Use
  Company Number: None

PATIENT
  Age: 59 Year
  Sex: Male

DRUGS (1)
  1. OCTREOTIDE 200MCG/ML MDV 5 ML [Suspect]
     Active Substance: OCTREOTIDE
     Dosage: ?          OTHER DOSE:1 INJECTION;?
     Route: 058
     Dates: start: 201904

REACTIONS (2)
  - Injection site extravasation [None]
  - Weight decreased [None]

NARRATIVE: CASE EVENT DATE: 20191018
